FAERS Safety Report 6589834-5 (Version None)
Quarter: 2010Q1

REPORT INFORMATION
  Report Type: 
  Country: None (occurrence: None)
  Receive Date: 20100212
  Receipt Date: 20100128
  Transmission Date: 20100710
  Serious: Yes (Hospitalization, Other)
  Sender: FDA-Public Use
  Company Number: AMAG201000055

PATIENT
  Age: 67 Year
  Sex: Male
  Weight: 133.3 kg

DRUGS (8)
  1. FERAHEME [Suspect]
     Indication: IRON DEFICIENCY ANAEMIA
     Dosage: 510 MG, SINGLE, INTRAVENOUS
     Route: 042
     Dates: start: 20100126, end: 20100126
  2. TRICOR [Concomitant]
  3. SODIUM BICARBONATE IN PLASTIC CONTAINER [Concomitant]
  4. SIMVASTATIN ACO (SIMVASTATIN) [Concomitant]
  5. HYDROCHLOROTHIAZIDE [Concomitant]
  6. ERGOCALCIFEROL [Concomitant]
  7. ASPIRIN [Concomitant]
  8. SPIRIVA [Concomitant]

REACTIONS (12)
  - BACK PAIN [None]
  - BRADYCARDIA [None]
  - CHEST DISCOMFORT [None]
  - CHEST PAIN [None]
  - HYPERHIDROSIS [None]
  - HYPOTENSION [None]
  - MALAISE [None]
  - RASH [None]
  - RENAL FAILURE ACUTE [None]
  - SKIN DISCOLOURATION [None]
  - UNRESPONSIVE TO STIMULI [None]
  - WHEEZING [None]
